FAERS Safety Report 18404211 (Version 1)
Quarter: 2020Q4

REPORT INFORMATION
  Report Type: Spontaneous
  Country: US (occurrence: US)
  Receive Date: 20201020
  Receipt Date: 20201020
  Transmission Date: 20210114
  Serious: Yes (Death)
  Sender: FDA-Public Use
  Company Number: None

PATIENT
  Age: 91 Year
  Sex: Male

DRUGS (2)
  1. VYNDAQEL [Suspect]
     Active Substance: TAFAMIDIS MEGLUMINE
     Indication: CARDIAC FAILURE CONGESTIVE
     Route: 048
     Dates: start: 20200203, end: 20201005
  2. VYNDAQEL [Suspect]
     Active Substance: TAFAMIDIS MEGLUMINE
     Indication: AMYLOIDOSIS
     Route: 048
     Dates: start: 20200203, end: 20201005

REACTIONS (2)
  - Condition aggravated [None]
  - Cardiac failure congestive [None]

NARRATIVE: CASE EVENT DATE: 20201005
